FAERS Safety Report 4613620-6 (Version None)
Quarter: 2005Q1

REPORT INFORMATION
  Report Type: 
  Country: None (occurrence: None)
  Receive Date: 20050318
  Receipt Date: 20050318
  Transmission Date: 20050727
  Serious: Yes (Hospitalization)
  Sender: FDA-Public Use
  Company Number: None

PATIENT
  Age: 64 Year
  Sex: Male
  Weight: 64.5 kg

DRUGS (7)
  1. CLONAZEPAM [Suspect]
     Indication: ANXIETY
     Dosage: 0.5 MG PO THREE TIMES DAILY LESS THAN 3 YEARS
     Route: 048
  2. CLONAZEPAM [Suspect]
     Indication: PAIN
     Dosage: 0.5 MG PO THREE TIMES DAILY LESS THAN 3 YEARS
     Route: 048
  3. MORPHINE CR [Concomitant]
  4. OXYCODONE AND ACETAMINOPHEN [Concomitant]
  5. ALBUTEROL [Concomitant]
  6. DIPHENHYDRAMINE HCL [Concomitant]
  7. SENNA [Concomitant]

REACTIONS (4)
  - DRUG WITHDRAWAL SYNDROME [None]
  - HALLUCINATION [None]
  - MENTAL STATUS CHANGES [None]
  - TREATMENT NONCOMPLIANCE [None]
